FAERS Safety Report 12266513 (Version 1)
Quarter: 2016Q2

REPORT INFORMATION
  Report Type: Spontaneous
  Country: CA (occurrence: CA)
  Receive Date: 20160414
  Receipt Date: 20160414
  Transmission Date: 20160815
  Serious: Yes (Other)
  Sender: FDA-Public Use
  Company Number: CA-009507513-1604CAN007912

PATIENT
  Age: 24 Year
  Sex: Female

DRUGS (1)
  1. ELOCOM [Suspect]
     Active Substance: MOMETASONE FUROATE
     Indication: ALOPECIA
     Dosage: 1 EVERY 1 DAY
     Route: 061

REACTIONS (3)
  - Photophobia [Unknown]
  - Drug effect decreased [Unknown]
  - Headache [Unknown]
